FAERS Safety Report 9489363 (Version 1)
Quarter: 2013Q3

REPORT INFORMATION
  Report Type: Spontaneous
  Country: GB (occurrence: GB)
  Receive Date: 20130829
  Receipt Date: 20130829
  Transmission Date: 20140515
  Serious: Yes (Other)
  Sender: FDA-Public Use
  Company Number: PHHY2013GB091440

PATIENT
  Age: 30 Year
  Sex: Female
  Weight: 54 kg

DRUGS (6)
  1. TRAMADOL [Suspect]
     Indication: POSTOPERATIVE ANALGESIA
     Dosage: 100 MG, QID; BETWEEN 50 AND100MG
     Route: 048
     Dates: start: 20130718, end: 20130809
  2. PREGABALIN [Concomitant]
     Indication: NEURALGIA
     Dates: start: 20130728, end: 20130806
  3. PARACETAMOL [Concomitant]
     Dates: start: 20130620, end: 20130808
  4. OXYNORM [Concomitant]
     Dates: start: 20130620, end: 20130806
  5. OXYCONTIN [Concomitant]
     Dates: start: 20130620, end: 20130717
  6. IBUPROFEN [Concomitant]
     Dates: start: 20130622, end: 20130727

REACTIONS (9)
  - Oral mucosal exfoliation [Recovering/Resolving]
  - Mouth ulceration [Unknown]
  - Abdominal tenderness [Not Recovered/Not Resolved]
  - Abdominal discomfort [Unknown]
  - Abnormal faeces [Not Recovered/Not Resolved]
  - Oral pain [Not Recovered/Not Resolved]
  - Lip ulceration [Unknown]
  - Tongue ulceration [Unknown]
  - Decreased appetite [Not Recovered/Not Resolved]
